FAERS Safety Report 12234564 (Version 1)
Quarter: 2016Q2

REPORT INFORMATION
  Report Type: Spontaneous
  Country: PL (occurrence: PL)
  Receive Date: 20160404
  Receipt Date: 20160404
  Transmission Date: 20160815
  Serious: Yes (Other)
  Sender: FDA-Public Use
  Company Number: PL-TEVA-643577ISR

PATIENT
  Age: 58 Year
  Sex: Female

DRUGS (2)
  1. GABAPENTIN TEVA [Suspect]
     Active Substance: GABAPENTIN
     Indication: TENDON INJURY
  2. GABAPENTIN TEVA [Suspect]
     Active Substance: GABAPENTIN
     Indication: PAIN
     Dosage: 2 OR 3 TABLETS (1600-2400 MG)
     Route: 048
     Dates: start: 20160226, end: 20160311

REACTIONS (4)
  - Tooth fracture [Recovering/Resolving]
  - Alopecia [Recovering/Resolving]
  - Tooth disorder [Recovering/Resolving]
  - Skin exfoliation [Recovering/Resolving]

NARRATIVE: CASE EVENT DATE: 20160310
